FAERS Safety Report 5907726-9 (Version None)
Quarter: 2008Q3

REPORT INFORMATION
  Report Type: 
  Country: None (occurrence: None)
  Receive Date: 20080929
  Receipt Date: 20080915
  Transmission Date: 20090109
  Serious: Yes (Other)
  Sender: FDA-Public Use
  Company Number: 1000000265

PATIENT
  Age: 40 Year
  Sex: Male
  Weight: 60 kg

DRUGS (2)
  1. CITALOPRAM HYDROBROMIDE [Suspect]
     Dosage: 1600 MG, ONCE, ORAL
     Route: 048
     Dates: start: 20080717, end: 20080717
  2. ALCOHOL [Suspect]
     Dosage: 6 DOSAGE FORMS, ONCE, ORAL
     Route: 048
     Dates: start: 20080717, end: 20080717

REACTIONS (3)
  - ALCOHOL POISONING [None]
  - MULTIPLE DRUG OVERDOSE INTENTIONAL [None]
  - SUICIDE ATTEMPT [None]
